FAERS Safety Report 12656332 (Version 1)
Quarter: 2016Q3

REPORT INFORMATION
  Report Type: Spontaneous
  Country: US (occurrence: US)
  Receive Date: 20160816
  Receipt Date: 20160816
  Transmission Date: 20161109
  Serious: No
  Sender: FDA-Public Use
  Company Number: US-PERRIGO-15US008057

PATIENT
  Age: 30 Year
  Sex: Female
  Weight: 68.27 kg

DRUGS (4)
  1. LORATADINE. [Suspect]
     Active Substance: LORATADINE
     Indication: EYE PRURITUS
     Dosage: 10 MG, SINGLE
     Route: 048
     Dates: start: 20150831, end: 20150831
  2. LORATADINE. [Suspect]
     Active Substance: LORATADINE
     Indication: SNEEZING
  3. LORATADINE. [Suspect]
     Active Substance: LORATADINE
     Indication: RHINORRHOEA
     Dosage: 10 MG, TWICE
     Route: 048
     Dates: start: 201508, end: 201508
  4. CYCLAFEM [Concomitant]
     Indication: CONTRACEPTION
     Dosage: UNK
     Route: 065
     Dates: start: 2013

REACTIONS (3)
  - Inappropriate schedule of drug administration [Unknown]
  - Rash papular [Unknown]
  - Pruritus [Unknown]

NARRATIVE: CASE EVENT DATE: 201508
